FAERS Safety Report 5230468-2 (Version None)
Quarter: 2007Q1

REPORT INFORMATION
  Report Type: 
  Country: None (occurrence: None)
  Receive Date: 20070201
  Receipt Date: 20070126
  Transmission Date: 20070707
  Serious: No
  Sender: FDA-Public Use
  Company Number: 2007-152940-NL

PATIENT
  Sex: Male

DRUGS (1)
  1. CHORIONIC GONADOTROPIN [Suspect]
     Indication: MEDICAL DIET
     Dosage: DF
     Route: 030

REACTIONS (1)
  - PROSTATE CANCER [None]
